FAERS Safety Report 11654904 (Version 4)
Quarter: 2016Q2

REPORT INFORMATION
  Report Type: Spontaneous
  Country: CA (occurrence: CA)
  Receive Date: 20151023
  Receipt Date: 20160429
  Transmission Date: 20160815
  Serious: Yes (Other)
  Sender: FDA-Public Use
  Company Number: CA-ROCHE-1648219

PATIENT
  Age: 56 Year
  Sex: Female

DRUGS (7)
  1. ARAVA [Concomitant]
     Active Substance: LEFLUNOMIDE
  2. PREDNISONE. [Concomitant]
     Active Substance: PREDNISONE
  3. ENBREL [Suspect]
     Active Substance: ETANERCEPT
     Indication: RHEUMATOID ARTHRITIS
     Route: 058
     Dates: start: 20121108
  4. XELJANZ [Concomitant]
     Active Substance: TOFACITINIB CITRATE
     Indication: RHEUMATOID ARTHRITIS
     Route: 048
  5. HUMIRA [Suspect]
     Active Substance: ADALIMUMAB
     Indication: PRODUCT USED FOR UNKNOWN INDICATION
     Route: 058
  6. RITUXAN [Suspect]
     Active Substance: RITUXIMAB
     Indication: PRODUCT USED FOR UNKNOWN INDICATION
     Route: 042
  7. ACTEMRA [Suspect]
     Active Substance: TOCILIZUMAB
     Indication: PRODUCT USED FOR UNKNOWN INDICATION
     Route: 065

REACTIONS (19)
  - Pain [Unknown]
  - Blood pressure increased [Unknown]
  - Injection site hypersensitivity [Unknown]
  - Drug ineffective [Unknown]
  - Injection site erythema [Unknown]
  - Rash [Unknown]
  - Haemorrhage [Unknown]
  - Back pain [Unknown]
  - Femur fracture [Unknown]
  - Adverse drug reaction [Unknown]
  - Swelling [Unknown]
  - Contusion [Unknown]
  - Oedema peripheral [Unknown]
  - Pruritus generalised [Unknown]
  - Osteoarthritis [Unknown]
  - Hypersensitivity [Unknown]
  - Osteoporosis [Unknown]
  - Dysphagia [Unknown]
  - Injection site bruising [Unknown]

NARRATIVE: CASE EVENT DATE: 20130112
